FAERS Safety Report 15125827 (Version 1)
Quarter: 2018Q3

REPORT INFORMATION
  Report Type: Spontaneous
  Country: US (occurrence: US)
  Receive Date: 20180710
  Receipt Date: 20180710
  Transmission Date: 20181010
  Serious: No
  Sender: FDA-Public Use
  Company Number: US-UPSHER-SMITH LABORATORIES, LLC-2017USL00308

PATIENT
  Sex: Male
  Weight: 68.27 kg

DRUGS (6)
  1. TESTOSTERONE. [Suspect]
     Active Substance: TESTOSTERONE
     Dosage: 37.5 MG (3 PUMPS), 1X/DAY
     Dates: start: 2017, end: 201712
  2. TESTOSTERONE. [Suspect]
     Active Substance: TESTOSTERONE
     Indication: SECONDARY HYPOGONADISM
     Dosage: 50 MG (4 PUMPS), 1X/DAY (2 PUMPS EACH TO LEFT AND RIGHT SHOULDER)
     Route: 061
     Dates: start: 2017, end: 2017
  3. TESTOSTERONE. [Suspect]
     Active Substance: TESTOSTERONE
     Dosage: 25 MG (2 PUMPS), 1X/DAY
     Dates: start: 201712
  4. SYNTHROID [Concomitant]
     Active Substance: LEVOTHYROXINE SODIUM
  5. LISINOPRIL. [Concomitant]
     Active Substance: LISINOPRIL
  6. CARVEDILOL. [Concomitant]
     Active Substance: CARVEDILOL

REACTIONS (2)
  - Blood testosterone increased [Recovering/Resolving]
  - Product substitution issue [Not Recovered/Not Resolved]

NARRATIVE: CASE EVENT DATE: 2017
